FAERS Safety Report 5096739-8 (Version None)
Quarter: 2006Q3

REPORT INFORMATION
  Report Type: 
  Country: None (occurrence: None)
  Receive Date: 20060831
  Receipt Date: 20060828
  Transmission Date: 20061208
  Serious: Yes (Other)
  Sender: FDA-Public Use
  Company Number: 2006-04696

PATIENT
  Age: 48 Year
  Sex: Female

DRUGS (6)
  1. TRELSTAR DEPOT [Suspect]
     Indication: BREAST CANCER
     Dosage: 3.75 MG, INTRAMUSCULAR
     Route: 030
  2. AROMASIN [Suspect]
     Indication: BREAST CANCER
     Dosage: 25 MG, DSILY, ORAL
     Route: 048
     Dates: start: 20050801, end: 20051011
  3. CELEBREX [Concomitant]
  4. NUROFEN [Concomitant]
  5. ACETAMINOPHEN [Concomitant]
  6. CODEINE [Concomitant]

REACTIONS (4)
  - ARTHRALGIA [None]
  - JOINT SWELLING [None]
  - MYALGIA [None]
  - OEDEMA PERIPHERAL [None]
